FAERS Safety Report 5483842-3 (Version None)
Quarter: 2007Q4

REPORT INFORMATION
  Report Type: 
  Country: None (occurrence: None)
  Receive Date: 20071009
  Receipt Date: 20071009
  Transmission Date: 20080405
  Serious: Yes (Hospitalization)
  Sender: FDA-Public Use
  Company Number: None

PATIENT
  Sex: Male
  Weight: 77.5 kg

DRUGS (1)
  1. TEMOZOLOMIDE [Suspect]
     Dosage: 2050 MG

REACTIONS (9)
  - CENTRAL NERVOUS SYSTEM NEOPLASM [None]
  - DISEASE PROGRESSION [None]
  - DISEASE RECURRENCE [None]
  - NECROSIS [None]
  - NEUTROPHIL COUNT ABNORMAL [None]
  - OEDEMA [None]
  - PLATELET COUNT ABNORMAL [None]
  - RADIATION INJURY [None]
  - WHITE BLOOD CELL COUNT ABNORMAL [None]
